FAERS Safety Report 5282538-0 (Version None)
Quarter: 2007Q1

REPORT INFORMATION
  Report Type: 
  Country: None (occurrence: None)
  Receive Date: 20070326
  Receipt Date: 20070315
  Transmission Date: 20070707
  Serious: Yes (Hospitalization)
  Sender: FDA-Public Use
  Company Number: 231663K07USA

PATIENT
  Age: 60 Year
  Sex: Female

DRUGS (4)
  1. REBIF [Suspect]
     Indication: MULTIPLE SCLEROSIS
     Dosage: SEE IMAGE
     Dates: start: 20050512, end: 20070218
  2. REBIF [Suspect]
     Indication: MULTIPLE SCLEROSIS
     Dosage: SEE IMAGE
     Dates: start: 20070222
  3. AMOXICILLIN [Suspect]
     Dates: end: 20070201
  4. ETODOLAC [Suspect]
     Dates: end: 20070201

REACTIONS (5)
  - CONDITION AGGRAVATED [None]
  - DRUG HYPERSENSITIVITY [None]
  - MULTIPLE SCLEROSIS [None]
  - TOOTH DISORDER [None]
  - TRISMUS [None]
